FAERS Safety Report 6374159-3 (Version None)
Quarter: 2009Q3

REPORT INFORMATION
  Report Type: 
  Country: None (occurrence: None)
  Receive Date: 20090924
  Receipt Date: 20090615
  Transmission Date: 20100115
  Serious: No
  Sender: FDA-Public Use
  Company Number: US-ASTRAZENECA-2009UW15265

PATIENT
  Sex: Male
  Weight: 95.3 kg

DRUGS (6)
  1. SEROQUEL XR [Suspect]
     Indication: SCHIZOAFFECTIVE DISORDER
     Route: 048
     Dates: start: 20090601
  2. CELEXA [Concomitant]
  3. GEODON [Concomitant]
  4. GENUVIA [Concomitant]
  5. PRAVACHOL [Concomitant]
  6. PROTONIX [Concomitant]

REACTIONS (3)
  - DRUG INEFFECTIVE [None]
  - PARANOIA [None]
  - SOCIAL PHOBIA [None]
